FAERS Safety Report 23814402 (Version 1)
Quarter: 2024Q2

REPORT INFORMATION
  Report Type: Spontaneous
  Country: AU (occurrence: AU)
  Receive Date: 20240503
  Receipt Date: 20240503
  Transmission Date: 20240716
  Serious: Yes (Hospitalization, Other)
  Sender: FDA-Public Use
  Company Number: AU-MYLANLABS-2024M1039540

PATIENT
  Age: 19 Year
  Sex: Male

DRUGS (15)
  1. CLOZAPINE [Suspect]
     Active Substance: CLOZAPINE
     Indication: Schizoaffective disorder bipolar type
     Dosage: 75-150MG
     Route: 065
  2. CLOZAPINE [Suspect]
     Active Substance: CLOZAPINE
     Dosage: 200 MILLIGRAM
     Route: 065
  3. OLANZAPINE [Suspect]
     Active Substance: OLANZAPINE
     Indication: Schizoaffective disorder bipolar type
     Dosage: 15 MILLIGRAM, QD
     Route: 065
  4. OLANZAPINE [Suspect]
     Active Substance: OLANZAPINE
     Dosage: DOSE DECREASED
     Route: 065
  5. VALPROIC ACID [Suspect]
     Active Substance: VALPROIC ACID
     Dosage: 2500 MILLIGRAM, QD
     Route: 065
  6. VALPROIC ACID [Suspect]
     Active Substance: VALPROIC ACID
     Dosage: DOSE DECREASED
     Route: 065
  7. CHLORPROMAZINE [Suspect]
     Active Substance: CHLORPROMAZINE
     Indication: Schizoaffective disorder bipolar type
     Dosage: 50 MILLIGRAM, QD
     Route: 065
  8. LURASIDONE [Concomitant]
     Active Substance: LURASIDONE
     Indication: Schizoaffective disorder bipolar type
     Dosage: UNK
     Route: 065
  9. ZUCLOPENTHIXOL [Concomitant]
     Active Substance: ZUCLOPENTHIXOL
     Indication: Schizoaffective disorder bipolar type
     Dosage: UNK
     Route: 065
  10. ASENAPINE [Concomitant]
     Active Substance: ASENAPINE
     Indication: Schizoaffective disorder bipolar type
     Dosage: UNK
     Route: 065
  11. AMISULPRIDE [Concomitant]
     Active Substance: AMISULPRIDE
     Indication: Schizoaffective disorder bipolar type
     Dosage: UNK
     Route: 065
  12. QUETIAPINE [Concomitant]
     Active Substance: QUETIAPINE
     Indication: Schizoaffective disorder bipolar type
     Dosage: UNK
     Route: 065
  13. ARIPIPRAZOLE [Concomitant]
     Active Substance: ARIPIPRAZOLE
     Indication: Schizoaffective disorder bipolar type
     Dosage: UNK
     Route: 065
  14. RISPERIDONE [Concomitant]
     Active Substance: RISPERIDONE
     Indication: Schizoaffective disorder bipolar type
     Dosage: UNK
     Route: 065
  15. PALIPERIDONE [Concomitant]
     Active Substance: PALIPERIDONE
     Indication: Schizoaffective disorder bipolar type
     Dosage: UNK
     Route: 065

REACTIONS (5)
  - Neutropenia [Recovered/Resolved]
  - Drug ineffective [Unknown]
  - Myocarditis [Recovered/Resolved]
  - Sinus tachycardia [Recovered/Resolved]
  - COVID-19 [Recovered/Resolved]
